FAERS Safety Report 14901766 (Version 4)
Quarter: 2018Q2

REPORT INFORMATION
  Report Type: Spontaneous
  Country: PT (occurrence: PT)
  Receive Date: 20180516
  Receipt Date: 20180606
  Transmission Date: 20180711
  Serious: Yes (Hospitalization)
  Sender: FDA-Public Use
  Company Number: PT-009507513-1805PRT005718

PATIENT
  Age: 63 Year
  Sex: Male

DRUGS (1)
  1. KEYTRUDA [Suspect]
     Active Substance: PEMBROLIZUMAB
     Indication: HODGKIN^S DISEASE
     Dosage: 200 MG, EVERY 3 WEEKS
     Route: 042
     Dates: start: 2018

REACTIONS (6)
  - Dyspnoea [Recovered/Resolved]
  - Pneumonitis [Unknown]
  - Computerised tomogram abnormal [Unknown]
  - Pyrexia [Recovered/Resolved]
  - Infection [Recovered/Resolved]
  - X-ray abnormal [Unknown]
